FAERS Safety Report 21136774 (Version 3)
Quarter: 2022Q4

REPORT INFORMATION
  Report Type: Spontaneous
  Country: US (occurrence: US)
  Receive Date: 20220727
  Receipt Date: 20221122
  Transmission Date: 20230113
  Serious: Yes (Other)
  Sender: FDA-Public Use
  Company Number: US-Cardinal Health 414-NPHS-AE-22-17

PATIENT
  Age: 80 Year
  Sex: Female
  Weight: 94.8 kg

DRUGS (2)
  1. UNSPECIFIED INGREDIENT [Concomitant]
     Active Substance: UNSPECIFIED INGREDIENT
  2. KIT FOR THE PREPARATION OF TECHNETIUM TC99M SESTAMIBI [Suspect]
     Active Substance: TECHNETIUM TC-99M SESTAMIBI
     Indication: Scan myocardial perfusion
     Dosage: REST DOSE
     Dates: start: 20220711, end: 20220711

REACTIONS (12)
  - Anuria [Unknown]
  - Urinary tract infection [Fatal]
  - Acute kidney injury [Fatal]
  - Ventricular tachycardia [Fatal]
  - Nephrolithiasis [Unknown]
  - Sepsis [Fatal]
  - Retroperitoneal oedema [Unknown]
  - Abdominal pain [Unknown]
  - Confusional state [Unknown]
  - Septic shock [Fatal]
  - Urosepsis [Fatal]
  - Hypovolaemia [Fatal]

NARRATIVE: CASE EVENT DATE: 20220712
